FAERS Safety Report 7133653-8 (Version None)
Quarter: 2010Q4

REPORT INFORMATION
  Report Type: 
  Country: None (occurrence: None)
  Receive Date: 20101202
  Receipt Date: 20101124
  Transmission Date: 20110411
  Serious: Yes (Life-Threatening)
  Sender: FDA-Public Use
  Company Number: FR-BAYER-201047950GPV

PATIENT

DRUGS (6)
  1. CALCIDIA [Suspect]
     Indication: HYPOCALCAEMIA
     Route: 048
     Dates: start: 20100920, end: 20101004
  2. LASILIX [Suspect]
     Indication: DIURETIC THERAPY
     Route: 048
     Dates: start: 20101004, end: 20101012
  3. UVEDOSE [Suspect]
     Indication: HYPOCALCAEMIA
     Route: 048
     Dates: start: 20101006, end: 20101018
  4. ACETAMINOPHEN [Suspect]
     Indication: PAIN
     Route: 048
     Dates: start: 20101004, end: 20101018
  5. AUGMENTIN [Suspect]
     Indication: LUNG DISORDER
     Route: 048
     Dates: start: 20101004, end: 20101012
  6. NEXIUM [Suspect]
     Indication: GASTRIC ULCER
     Route: 048
     Dates: start: 20101004, end: 20101012

REACTIONS (1)
  - PANCYTOPENIA [None]
